FAERS Safety Report 17946238 (Version 4)
Quarter: 2020Q4

REPORT INFORMATION
  Report Type: Spontaneous
  Country: US (occurrence: US)
  Receive Date: 20200626
  Receipt Date: 20201215
  Transmission Date: 20210113
  Serious: Yes (Other)
  Sender: FDA-Public Use
  Company Number: US-GILEAD-2020-0476455

PATIENT
  Age: 42 Year
  Sex: Male
  Weight: 57.14 kg

DRUGS (41)
  1. AMOXICILLIN. [Concomitant]
     Active Substance: AMOXICILLIN
  2. MEDROXYPROGESTERONE ACETATE. [Concomitant]
     Active Substance: MEDROXYPROGESTERONE ACETATE
  3. DORAFEM [Concomitant]
     Active Substance: DOMPERIDONE\RABEPRAZOLE
  4. LASIX [Concomitant]
     Active Substance: FUROSEMIDE
  5. ALENDRONATE [Concomitant]
     Active Substance: ALENDRONATE SODIUM
  6. CORTISONE [Concomitant]
     Active Substance: CORTISONE
  7. DIAMOX SEQUELS [Concomitant]
     Active Substance: ACETAZOLAMIDE
  8. INDINAVIR [Concomitant]
     Active Substance: INDINAVIR
  9. TACROLIMUS. [Concomitant]
     Active Substance: TACROLIMUS
  10. TRIAMCINOLONE [Concomitant]
     Active Substance: TRIAMCINOLONE
  11. VANCOMYCIN [Concomitant]
     Active Substance: VANCOMYCIN
  12. WARFARIN [Concomitant]
     Active Substance: WARFARIN
  13. CRESTOR [Concomitant]
     Active Substance: ROSUVASTATIN CALCIUM
  14. GANCICLOVIR. [Concomitant]
     Active Substance: GANCICLOVIR
  15. METHOTREXATE. [Concomitant]
     Active Substance: METHOTREXATE
  16. VIREAD [Suspect]
     Active Substance: TENOFOVIR DISOPROXIL FUMARATE
     Indication: HIV INFECTION
     Dosage: UNK
     Route: 048
     Dates: start: 200110, end: 201202
  17. AMPICILLIN [Concomitant]
     Active Substance: AMPICILLIN
  18. CELEBREX [Concomitant]
     Active Substance: CELECOXIB
  19. DEMADEX [Concomitant]
     Active Substance: TORSEMIDE
  20. DEPAKOTE [Concomitant]
     Active Substance: DIVALPROEX SODIUM
  21. DEXLANSOPRAZOLE [Concomitant]
     Active Substance: DEXLANSOPRAZOLE
  22. EDECRIN [ETACRYNATE SODIUM] [Concomitant]
  23. PREDNISOLONE. [Concomitant]
     Active Substance: PREDNISOLONE
  24. BACTRIM [Concomitant]
     Active Substance: SULFAMETHOXAZOLE\TRIMETHOPRIM
  25. DYAZIDE [Concomitant]
     Active Substance: HYDROCHLOROTHIAZIDE\TRIAMTERENE
  26. LEVOTHYROXINE. [Concomitant]
     Active Substance: LEVOTHYROXINE
  27. PENICILLIN [PENICILLIN NOS] [Concomitant]
     Active Substance: PENICILLIN
  28. BUMEX [Concomitant]
     Active Substance: BUMETANIDE
  29. DIURIL [CHLOROTHIAZIDE SODIUM] [Concomitant]
  30. FLEET LAXATIVE [Concomitant]
  31. HEPARIN [Concomitant]
     Active Substance: HEPARIN SODIUM
  32. TRUVADA [Suspect]
     Active Substance: EMTRICITABINE\TENOFOVIR DISOPROXIL FUMARATE
     Indication: HIV INFECTION
     Dosage: UNK
     Route: 048
     Dates: start: 201203, end: 2017
  33. ESOMEPRAZOLE. [Concomitant]
     Active Substance: ESOMEPRAZOLE MAGNESIUM
  34. FLOMAX [Concomitant]
     Active Substance: TAMSULOSIN HYDROCHLORIDE
  35. TETRACYCLINE [Concomitant]
     Active Substance: TETRACYCLINE
  36. APTIVUS [Concomitant]
     Active Substance: TIPRANAVIR
  37. ACETAMINOPHEN. [Concomitant]
     Active Substance: ACETAMINOPHEN
  38. GLYBURIDE. [Concomitant]
     Active Substance: GLYBURIDE
  39. LOVENOX [LEVOFLOXACIN] [Concomitant]
     Active Substance: LEVOFLOXACIN
  40. PRAVASTATIN. [Concomitant]
     Active Substance: PRAVASTATIN
  41. SIMVASTATIN. [Concomitant]
     Active Substance: SIMVASTATIN

REACTIONS (13)
  - Pathological fracture [Unknown]
  - Bone density decreased [Unknown]
  - Osteomalacia [Recovered/Resolved]
  - Tooth loss [Unknown]
  - Multiple fractures [Unknown]
  - Bone loss [Not Recovered/Not Resolved]
  - Rib fracture [Recovered/Resolved]
  - Osteoporosis [Not Recovered/Not Resolved]
  - Depression [Not Recovered/Not Resolved]
  - Spinal fracture [Not Recovered/Not Resolved]
  - Osteonecrosis [Unknown]
  - Chronic kidney disease [Not Recovered/Not Resolved]
  - Fanconi syndrome acquired [Unknown]

NARRATIVE: CASE EVENT DATE: 20080807
